FAERS Safety Report 14026522 (Version 4)
Quarter: 2018Q2

REPORT INFORMATION
  Report Type: Report from Study
  Country: US (occurrence: US)
  Receive Date: 20170929
  Receipt Date: 20180412
  Transmission Date: 20180711
  Serious: Yes (Hospitalization)
  Sender: FDA-Public Use
  Company Number: US-SEATTLE GENETICS-2017SGN02247

PATIENT
  Age: 19 Year
  Sex: Male
  Weight: 113.3 kg

DRUGS (16)
  1. MOMETASONE [Concomitant]
     Active Substance: MOMETASONE
  2. ACETAMINOPHEN. [Concomitant]
     Active Substance: ACETAMINOPHEN
  3. DOXORUBICIN [Suspect]
     Active Substance: DOXORUBICIN
     Indication: HODGKIN^S DISEASE
     Dosage: 25 MG/M2, QCYCLE
     Route: 040
     Dates: start: 20170429, end: 20170725
  4. METOPROLOL. [Concomitant]
     Active Substance: METOPROLOL
  5. PREDNISONE. [Suspect]
     Active Substance: PREDNISONE
     Indication: HODGKIN^S DISEASE
     Dosage: 20 MG/M2, QCYCLE
     Route: 048
     Dates: start: 20170429, end: 20170731
  6. ALBUTEROL. [Concomitant]
     Active Substance: ALBUTEROL
  7. TRIMETHOPRIM SULFAMETHOXAZOLE [Concomitant]
     Active Substance: SULFAMETHOXAZOLE\TRIMETHOPRIM
  8. CYCLOPHOSPHAMIDE. [Suspect]
     Active Substance: CYCLOPHOSPHAMIDE
     Indication: HODGKIN^S DISEASE
     Dosage: 600 MG/M2, QCYCLE
     Route: 042
     Dates: start: 20170429, end: 20170725
  9. RANITIDINE. [Concomitant]
     Active Substance: RANITIDINE
  10. BRENTUXIMAB VEDOTIN [Suspect]
     Active Substance: BRENTUXIMAB VEDOTIN
     Indication: HODGKIN^S DISEASE
     Dosage: 1.8 MG/KG, QCYCLE
     Route: 042
     Dates: start: 20170429, end: 20170724
  11. VINCRISTINE [Suspect]
     Active Substance: VINCRISTINE
     Indication: HODGKIN^S DISEASE
     Dosage: 1.4 MG/M2, QCYCLE
     Route: 042
     Dates: start: 20170429, end: 20170728
  12. MONTELUKAST [Concomitant]
     Active Substance: MONTELUKAST SODIUM
  13. ONDANSETRON [Concomitant]
     Active Substance: ONDANSETRON
  14. ETOPOSIDE. [Suspect]
     Active Substance: ETOPOSIDE
     Indication: HODGKIN^S DISEASE
     Dosage: 125 MG/M2, QCYCLE
     Route: 042
     Dates: start: 20170429, end: 20170726
  15. LORAZEPAM. [Concomitant]
     Active Substance: LORAZEPAM
  16. OXYCODONE [Concomitant]
     Active Substance: OXYCODONE

REACTIONS (2)
  - Malignant neoplasm progression [Unknown]
  - Cardiac failure [Unknown]

NARRATIVE: CASE EVENT DATE: 20170911
